FAERS Safety Report 22385686 (Version 2)
Quarter: 2023Q2

REPORT INFORMATION
  Report Type: Spontaneous
  Country: US (occurrence: None)
  Receive Date: 20230530
  Receipt Date: 20230609
  Transmission Date: 20230722
  Serious: Yes (Other)
  Sender: FDA-Public Use
  Company Number: 2023A123238

PATIENT
  Age: 739 Month
  Sex: Female

DRUGS (2)
  1. IMFINZI [Suspect]
     Active Substance: DURVALUMAB
     Indication: Lung carcinoma cell type unspecified stage III
     Route: 058
     Dates: start: 20220912
  2. BUDESONIDE [Suspect]
     Active Substance: BUDESONIDE
     Indication: Wheezing
     Dosage: 2.0ML UNKNOWN
     Route: 055
     Dates: start: 20230301, end: 20230530

REACTIONS (5)
  - Leukoplakia [Unknown]
  - Dysphonia [Unknown]
  - Wheezing [Unknown]
  - Dyspnoea [Unknown]
  - Vocal cord disorder [Unknown]

NARRATIVE: CASE EVENT DATE: 20230401
